FAERS Safety Report 7511278-X (Version None)
Quarter: 2011Q2

REPORT INFORMATION
  Report Type: 
  Country: None (occurrence: None)
  Receive Date: 20110531
  Receipt Date: 20100521
  Transmission Date: 20111010
  Serious: Yes (Other)
  Sender: FDA-Public Use
  Company Number: US-BAYER-201013307NA

PATIENT
  Age: 22 Year
  Sex: Female
  Weight: 83.182 kg

DRUGS (2)
  1. DROSPIRENONE AND ETHINYL ESTRADIOL [Suspect]
     Indication: PRODUCT USED FOR UNKNOWN INDICATION
     Route: 048
     Dates: start: 20050101, end: 20090101
  2. YASMIN [Suspect]
     Indication: PRODUCT USED FOR UNKNOWN INDICATION
     Route: 048
     Dates: start: 20050101, end: 20090101

REACTIONS (9)
  - CHOLECYSTITIS [None]
  - CHEST PAIN [None]
  - MUSCULOSKELETAL PAIN [None]
  - CHOLELITHIASIS [None]
  - ABDOMINAL PAIN UPPER [None]
  - GALLBLADDER CHOLESTEROLOSIS [None]
  - ABDOMINAL PAIN [None]
  - VOMITING [None]
  - NAUSEA [None]
